FAERS Safety Report 10917385 (Version 1)
Quarter: 2015Q1

REPORT INFORMATION
  Report Type: Spontaneous
  Country: CA (occurrence: CA)
  Receive Date: 20150316
  Receipt Date: 20150316
  Transmission Date: 20150721
  Serious: Yes (Hospitalization, Other)
  Sender: FDA-Public Use
  Company Number: CA-TEVA-547060ACC

PATIENT
  Age: 26 Year
  Sex: Female

DRUGS (5)
  1. PRO-CLONAZEPAM [Concomitant]
     Dosage: UNKNOWN FORM STRENGTH
     Route: 065
  2. MARVELON [Concomitant]
     Active Substance: DESOGESTREL\ETHINYL ESTRADIOL
     Dosage: UNKNOWN FORM STRENGTH
     Route: 065
  3. CITALOPRAM [Concomitant]
     Active Substance: CITALOPRAM HYDROBROMIDE
     Dosage: UNKNOWN FORM STRENGTH
     Route: 065
  4. EMO CORT [Concomitant]
     Dosage: UNKNOWN FORM STRENGTH
     Route: 065
  5. MINOCYCLINE [Suspect]
     Active Substance: MINOCYCLINE\MINOCYCLINE HYDROCHLORIDE
     Indication: DERMATITIS
     Dosage: 100 MILLIGRAM DAILY;
     Route: 048

REACTIONS (8)
  - Anxiety [Not Recovered/Not Resolved]
  - Depersonalisation [Not Recovered/Not Resolved]
  - Vertigo [Not Recovered/Not Resolved]
  - Malaise [Not Recovered/Not Resolved]
  - Crying [Not Recovered/Not Resolved]
  - Fatigue [Not Recovered/Not Resolved]
  - Nausea [Not Recovered/Not Resolved]
  - Headache [Not Recovered/Not Resolved]
